FAERS Safety Report 6010767-7 (Version None)
Quarter: 2008Q4

REPORT INFORMATION
  Report Type: 
  Country: None (occurrence: None)
  Receive Date: 20081218
  Receipt Date: 20081210
  Transmission Date: 20090506
  Serious: Yes (Other)
  Sender: FDA-Public Use
  Company Number: US-ASTRAZENECA-2008UW27689

PATIENT
  Age: 44 Year
  Sex: Male

DRUGS (1)
  1. CRESTOR [Suspect]
     Dates: start: 20061201, end: 20081114

REACTIONS (1)
  - TRANSIENT ISCHAEMIC ATTACK [None]
